FAERS Safety Report 4861013-9 (Version None)
Quarter: 2005Q4

REPORT INFORMATION
  Report Type: 
  Country: None (occurrence: None)
  Receive Date: 20051220
  Receipt Date: 20050928
  Transmission Date: 20060501
  Serious: No
  Sender: FDA-Public Use
  Company Number: US-GLAXOSMITHKLINE-A0576242A

PATIENT
  Sex: Male

DRUGS (3)
  1. TAGAMET [Suspect]
     Indication: GASTRITIS
     Dosage: 400MG TWICE PER DAY
     Route: 048
  2. PRAVACHOL [Concomitant]
  3. ATENOLOL [Concomitant]

REACTIONS (1)
  - DRUG INEFFECTIVE [None]
